FAERS Safety Report 17819051 (Version 1)
Quarter: 2020Q2

REPORT INFORMATION
  Report Type: Spontaneous
  Country: FR (occurrence: FR)
  Receive Date: 20200523
  Receipt Date: 20200523
  Transmission Date: 20200714
  Serious: Yes (Hospitalization)
  Sender: FDA-Public Use
  Company Number: FR-TEVA-2020-FR-1238590

PATIENT
  Age: 10 Year
  Sex: Female
  Weight: 33 kg

DRUGS (2)
  1. METHOTREXATE. [Suspect]
     Active Substance: METHOTREXATE
     Indication: LEUKAEMIA
     Dosage: 10MG
     Route: 048
     Dates: end: 20190718
  2. PURINETHOL [Suspect]
     Active Substance: MERCAPTOPURINE
     Dosage: 10MG
     Route: 048
     Dates: start: 20190325, end: 20190718

REACTIONS (2)
  - Neutropenia [Recovered/Resolved]
  - Varicella [Recovered/Resolved]

NARRATIVE: CASE EVENT DATE: 20190711
